FAERS Safety Report 6732270-9 (Version None)
Quarter: 2010Q2

REPORT INFORMATION
  Report Type: 
  Country: None (occurrence: None)
  Receive Date: 20100519
  Receipt Date: 20100511
  Transmission Date: 20101027
  Serious: Yes (Hospitalization)
  Sender: FDA-Public Use
  Company Number: B0652189A

PATIENT
  Sex: Female

DRUGS (5)
  1. DEROXAT [Suspect]
     Dosage: 20MG PER DAY
     Route: 048
  2. COUMADIN [Suspect]
     Dosage: 20MG PER DAY
     Route: 048
  3. CORDARONE [Concomitant]
     Indication: ARRHYTHMIA
     Route: 048
     Dates: end: 20091124
  4. NEXIUM [Concomitant]
     Route: 048
  5. CARDENSIEL [Concomitant]
     Dosage: 2.5MG PER DAY
     Route: 048

REACTIONS (6)
  - DRUG INTERACTION [None]
  - HAEMATOCHEZIA [None]
  - HAEMOGLOBIN DECREASED [None]
  - INTERNATIONAL NORMALISED RATIO INCREASED [None]
  - OVERDOSE [None]
  - RECTAL HAEMORRHAGE [None]
